FAERS Safety Report 5324350-X (Version None)
Quarter: 2007Q2

REPORT INFORMATION
  Report Type: 
  Country: None (occurrence: None)
  Receive Date: 20070509
  Receipt Date: 20070503
  Transmission Date: 20071010
  Serious: Yes (Hospitalization, Disabling)
  Sender: FDA-Public Use
  Company Number: TUK2007A00042

PATIENT
  Age: 70 Year
  Sex: Female

DRUGS (8)
  1. ACTOS [Suspect]
     Indication: DIABETES MELLITUS
     Dosage: 15 MG; ORAL
     Route: 048
     Dates: start: 20070310, end: 20070420
  2. ASPIRIN [Concomitant]
  3. ATENOLOL [Concomitant]
  4. GLICLAZIDE (GLICLAZIDE) [Concomitant]
  5. IRBESARTAN [Concomitant]
  6. METFORMIN HCL [Concomitant]
  7. NICORANDIL [Concomitant]
  8. SIMVASTATIN [Concomitant]

REACTIONS (2)
  - FALL [None]
  - HUMERUS FRACTURE [None]
